FAERS Safety Report 7747620-4 (Version None)
Quarter: 2011Q3

REPORT INFORMATION
  Report Type: 
  Country: None (occurrence: None)
  Receive Date: 20110913
  Receipt Date: 20110908
  Transmission Date: 20111222
  Serious: No
  Sender: FDA-Public Use
  Company Number: US-TEVA-299810USA

PATIENT
  Sex: Female
  Weight: 69.916 kg

DRUGS (3)
  1. EYE VITAMINS (NOS) [Concomitant]
  2. PROAIR HFA [Suspect]
     Dosage: 90 MICROGRAM;
     Route: 055
     Dates: start: 20110907
  3. DULERA (FORMOTEROL AND MOMETASONE) [Concomitant]

REACTIONS (1)
  - VISION BLURRED [None]
